FAERS Safety Report 15241954 (Version 1)
Quarter: 2018Q4

REPORT INFORMATION
  Report Type: Spontaneous
  Country: US (occurrence: US)
  Receive Date: 20180806
  Receipt Date: 20180806
  Transmission Date: 20190204
  Serious: No
  Sender: FDA-Public Use
  Company Number: US-LUPIN PHARMACEUTICALS INC.-2017-05936

PATIENT
  Sex: Female

DRUGS (1)
  1. ESZOPICLONE TABLETS, 2 MG [Suspect]
     Active Substance: ESZOPICLONE
     Indication: SLEEP DISORDER
     Dosage: 2 MG, UNK
     Route: 065
     Dates: start: 20170920

REACTIONS (3)
  - Paraesthesia [Recovered/Resolved]
  - Product substitution issue [Unknown]
  - Drug ineffective [Unknown]
